FAERS Safety Report 9319804 (Version 1)
Quarter: 2013Q2

REPORT INFORMATION
  Report Type: Spontaneous
  Country: US (occurrence: US)
  Receive Date: 20130530
  Receipt Date: 20130530
  Transmission Date: 20140414
  Serious: No
  Sender: FDA-Public Use
  Company Number: US-B.I. PHARMACEUTICALS,INC./RIDGEFIELD-2013-BI-15231BP

PATIENT
  Age: 47 Year
  Sex: Female
  Weight: 64 kg

DRUGS (12)
  1. ZANTAC (RANITIDINE HYDROCHLORIDE) [Suspect]
     Indication: HYPERSENSITIVITY
     Dosage: 300 MG
     Route: 048
     Dates: start: 20130527, end: 20130527
  2. CALCIUM [Concomitant]
     Dosage: 600 MG
     Route: 048
  3. ESTRADIOL [Concomitant]
     Indication: HYSTERECTOMY
     Dosage: 0.5 MG
     Route: 048
  4. VITAMIN D [Concomitant]
     Dosage: STRENGTH: 50000 UNITS; DAILY DOSE: 50000 UNIT
     Route: 048
  5. FLEXERIL [Concomitant]
     Indication: NECK SURGERY
     Dosage: 10 MG
     Route: 048
  6. LEVOTHYROXINE [Concomitant]
     Indication: HYPOTHYROIDISM
     Dosage: 50 MCG
     Route: 048
  7. VITAMIN E [Concomitant]
     Dosage: 400 U
     Route: 048
  8. VITAMIN B 12 [Concomitant]
     Route: 030
  9. CULTURELLE [Concomitant]
     Route: 048
  10. ASPIRIN [Concomitant]
     Dosage: 81 MG
     Route: 048
  11. XANAX [Concomitant]
     Indication: ANXIETY
     Dosage: 4.5 MG
     Route: 048
  12. FENOFIBRATE [Concomitant]
     Indication: BLOOD CHOLESTEROL INCREASED
     Dosage: 160 MG
     Route: 048

REACTIONS (3)
  - Pruritus [Not Recovered/Not Resolved]
  - Erythema [Not Recovered/Not Resolved]
  - Eye swelling [Not Recovered/Not Resolved]
